FAERS Safety Report 8273998-1 (Version None)
Quarter: 2012Q2

REPORT INFORMATION
  Report Type: 
  Country: None (occurrence: None)
  Receive Date: 20120409
  Receipt Date: 20120330
  Transmission Date: 20120825
  Serious: Yes (Death, Hospitalization)
  Sender: FDA-Public Use
  Company Number: DKLU1077731

PATIENT
  Age: 16 Year
  Sex: Female

DRUGS (7)
  1. LAMICTAL [Concomitant]
  2. SABRIL [Suspect]
     Indication: EPILEPSY
     Dosage: SEE IMAGE
     Route: 048
     Dates: start: 20110224
  3. SABRIL [Suspect]
     Indication: EPILEPSY
     Dosage: SEE IMAGE
     Route: 048
     Dates: start: 20110224
  4. SABRIL [Suspect]
     Indication: EPILEPSY
     Dosage: SEE IMAGE
     Route: 048
     Dates: start: 20110224
  5. KLONOPIN [Concomitant]
  6. DILANTIN [Concomitant]
  7. KEPPRA [Concomitant]

REACTIONS (1)
  - HOSPITALISATION [None]
